FAERS Safety Report 17689441 (Version 2)
Quarter: 2020Q3

REPORT INFORMATION
  Report Type: Spontaneous
  Country: US (occurrence: US)
  Receive Date: 20200421
  Receipt Date: 20200715
  Transmission Date: 20201102
  Serious: No
  Sender: FDA-Public Use
  Company Number: US-INSMED, INC.-US-INS-20-00443

PATIENT
  Sex: Female

DRUGS (2)
  1. LAMIRA NEBULIZER SYSTEM [Suspect]
     Active Substance: DEVICE
  2. ARIKAYCE [Suspect]
     Active Substance: AMIKACIN
     Indication: MYCOBACTERIUM AVIUM COMPLEX INFECTION
     Route: 055
     Dates: start: 2019

REACTIONS (8)
  - Sputum discoloured [Recovering/Resolving]
  - Increased viscosity of bronchial secretion [Recovering/Resolving]
  - Nausea [Not Recovered/Not Resolved]
  - Intentional dose omission [Unknown]
  - Cough [Not Recovered/Not Resolved]
  - Secretion discharge [Recovering/Resolving]
  - Fatigue [Not Recovered/Not Resolved]
  - Productive cough [Recovering/Resolving]
